FAERS Safety Report 5129314-7 (Version None)
Quarter: 2006Q4

REPORT INFORMATION
  Report Type: 
  Country: None (occurrence: None)
  Receive Date: 20061018
  Receipt Date: 20061005
  Transmission Date: 20070319
  Serious: Yes (Other)
  Sender: FDA-Public Use
  Company Number: PHBS2006BE15548

PATIENT
  Age: 71 Year
  Sex: Male

DRUGS (4)
  1. LESCOL XL [Suspect]
     Indication: HYPERCHOLESTEROLAEMIA
     Dosage: 80 MG/DAY
     Route: 048
     Dates: start: 20060101, end: 20061001
  2. PLAVIX [Concomitant]
  3. COZAAR [Concomitant]
     Dosage: 100 MG/DAY
  4. TENORETIC 100 [Concomitant]

REACTIONS (5)
  - BLOOD BILIRUBIN INCREASED [None]
  - BLOOD CREATININE INCREASED [None]
  - BLOOD TRIGLYCERIDES INCREASED [None]
  - BLOOD UREA ABNORMAL [None]
  - LIPASE INCREASED [None]
